FAERS Safety Report 11867265 (Version 1)
Quarter: 2015Q4

REPORT INFORMATION
  Report Type: Spontaneous
  Country: DE (occurrence: None)
  Receive Date: 20151223
  Receipt Date: 20151223
  Transmission Date: 20160305
  Serious: Yes (Death, Other)
  Sender: FDA-Public Use
  Company Number: 062-21660-13033089

PATIENT

DRUGS (6)
  1. DOCETAXEL (DOCETAXEL) [Concomitant]
     Active Substance: DOCETAXEL
  2. CYCLOPHOSPHAMIDE (CYCLOPHOSPHAMIDE) [Concomitant]
     Active Substance: CYCLOPHOSPHAMIDE
  3. PERTUZUMAB (PERTUZUMAB) (PERTUZUMAB) [Concomitant]
     Active Substance: PERTUZUMAB
  4. TRASTUZUMAB (TRASTUZUMAB) [Concomitant]
     Active Substance: TRASTUZUMAB
  5. ABRAXANE [Suspect]
     Active Substance: PACLITAXEL
     Indication: BREAST CANCER
     Route: 042
  6. EPIRUBICIN (EPIRUBICIN) [Concomitant]
     Active Substance: EPIRUBICIN

REACTIONS (18)
  - Mucosal inflammation [None]
  - Dyspnoea [None]
  - Aspartate aminotransferase increased [None]
  - Blood creatinine increased [None]
  - Palmar-plantar erythrodysaesthesia syndrome [None]
  - Hypersensitivity [None]
  - Myalgia [None]
  - Febrile neutropenia [None]
  - Peripheral sensory neuropathy [None]
  - Blood alkaline phosphatase increased [None]
  - Nausea [None]
  - Rash [None]
  - Pulmonary embolism [None]
  - Fatigue [None]
  - Headache [None]
  - Epistaxis [None]
  - Infection [None]
  - Leukopenia [None]
